FAERS Safety Report 17906168 (Version 1)
Quarter: 2020Q2

REPORT INFORMATION
  Report Type: Report from Study
  Country: IT (occurrence: IT)
  Receive Date: 20200617
  Receipt Date: 20200617
  Transmission Date: 20200714
  Serious: Yes (Hospitalization)
  Sender: FDA-Public Use
  Company Number: IT-TEVA-2020-IT-1464217

PATIENT
  Age: 29 Year
  Sex: Female

DRUGS (2)
  1. NAPROXEN SODIUM. [Suspect]
     Active Substance: NAPROXEN SODIUM
     Indication: INTENTIONAL SELF-INJURY
     Dosage: 3300 MG
     Route: 048
     Dates: start: 20200228, end: 20200228
  2. NUROFEN [IBUPROFEN SODIUM] [Suspect]
     Active Substance: IBUPROFEN SODIUM
     Indication: INTENTIONAL SELF-INJURY
     Dosage: 5 DOSAGE FORMS
     Route: 048
     Dates: start: 20200228, end: 20200228

REACTIONS (3)
  - Abdominal pain upper [Recovered/Resolved]
  - Abdominal tenderness [Recovered/Resolved]
  - Abdominal pain [Recovered/Resolved]

NARRATIVE: CASE EVENT DATE: 20200228
